FAERS Safety Report 8133487-1 (Version None)
Quarter: 2012Q1

REPORT INFORMATION
  Report Type: 
  Country: None (occurrence: None)
  Receive Date: 20120213
  Receipt Date: 20120202
  Transmission Date: 20120608
  Serious: Yes (Other)
  Sender: FDA-Public Use
  Company Number: AU-BAXTER-2012BH003518

PATIENT
  Sex: Male

DRUGS (2)
  1. DIANEAL [Suspect]
     Indication: PERITONEAL DIALYSIS
     Route: 033
     Dates: end: 20120203
  2. EXTRANEAL [Suspect]
     Indication: PERITONEAL DIALYSIS
     Route: 033
     Dates: end: 20120203

REACTIONS (5)
  - ORAL CANDIDIASIS [None]
  - PERITONITIS BACTERIAL [None]
  - FUNGAL PERITONITIS [None]
  - LARGE INTESTINE PERFORATION [None]
  - PERITONEAL CLOUDY EFFLUENT [None]
